FAERS Safety Report 5733258-7 (Version None)
Quarter: 2008Q2

REPORT INFORMATION
  Report Type: 
  Country: None (occurrence: None)
  Receive Date: 20080509
  Receipt Date: 20080506
  Transmission Date: 20081010
  Serious: Yes (Other)
  Sender: FDA-Public Use
  Company Number: A0726593A

PATIENT
  Sex: Male

DRUGS (9)
  1. RYTHMOL SR [Suspect]
     Indication: ATRIAL FIBRILLATION
     Dosage: 225MG TWICE PER DAY
     Route: 048
     Dates: start: 20080325, end: 20080329
  2. LIPITOR [Concomitant]
  3. POTASSIUM CITRATE [Concomitant]
  4. CLORTALIDONE [Concomitant]
  5. CARTIA XT [Concomitant]
  6. ASTELIN [Concomitant]
  7. NASONEX [Concomitant]
     Route: 045
  8. MAGNESIUM [Concomitant]
  9. ASPIRIN [Concomitant]

REACTIONS (3)
  - ATRIAL FIBRILLATION [None]
  - DYSGEUSIA [None]
  - VENTRICULAR EXTRASYSTOLES [None]
